FAERS Safety Report 6743892-3 (Version None)
Quarter: 2010Q2

REPORT INFORMATION
  Report Type: 
  Country: None (occurrence: None)
  Receive Date: 20100527
  Receipt Date: 20100518
  Transmission Date: 20101027
  Serious: Yes (Hospitalization)
  Sender: FDA-Public Use
  Company Number: US-ASTRAZENECA-2010SE22860

PATIENT
  Age: 46 Year
  Sex: Male
  Weight: 94.3 kg

DRUGS (10)
  1. NEXIUM [Suspect]
     Indication: GASTROOESOPHAGEAL REFLUX DISEASE
     Route: 048
     Dates: start: 20051201, end: 20100517
  2. XANAX [Concomitant]
     Indication: ANXIETY
  3. ZOFRAN [Concomitant]
     Indication: NAUSEA
     Dates: end: 20100514
  4. CARAFATE [Concomitant]
     Dates: end: 20100501
  5. LORTAB [Concomitant]
  6. LIBRAX [Concomitant]
     Dosage: TID
     Dates: end: 20100501
  7. BENTYL [Concomitant]
     Dates: end: 20100501
  8. PERCOCET [Concomitant]
  9. GAS-X [Concomitant]
  10. MYLANTA [Concomitant]

REACTIONS (6)
  - ABDOMINAL PAIN [None]
  - ABDOMINAL PAIN UPPER [None]
  - CHROMATURIA [None]
  - GALLBLADDER OPERATION [None]
  - NAUSEA [None]
  - PAIN [None]
